FAERS Safety Report 19273152 (Version 4)
Quarter: 2021Q3

REPORT INFORMATION
  Report Type: Spontaneous
  Country: US (occurrence: US)
  Receive Date: 20210519
  Receipt Date: 20210924
  Transmission Date: 20211014
  Serious: No
  Sender: FDA-Public Use
  Company Number: US-SA-2021SA164450

PATIENT
  Age: 17 Year
  Sex: Male

DRUGS (2)
  1. RITUXIMAB. [Suspect]
     Active Substance: RITUXIMAB
  2. CABLIVI [Suspect]
     Active Substance: CAPLACIZUMAB-YHDP
     Indication: THROMBOTIC MICROANGIOPATHY
     Dosage: 11 MG, QD
     Route: 058
     Dates: start: 20210501

REACTIONS (6)
  - Mood swings [Unknown]
  - Joint stiffness [Unknown]
  - General physical health deterioration [Unknown]
  - Arthralgia [Unknown]
  - Jaundice [Unknown]
  - Product administered to patient of inappropriate age [Unknown]
